FAERS Safety Report 25509066 (Version 1)
Quarter: 2025Q3

REPORT INFORMATION
  Report Type: Spontaneous
  Country: GB (occurrence: GB)
  Receive Date: 20250703
  Receipt Date: 20250703
  Transmission Date: 20251020
  Serious: Yes (Disabling, Other)
  Sender: TEVA
  Company Number: None

PATIENT
  Age: 69 Year
  Sex: Female

DRUGS (2)
  1. ROPINIROLE [Suspect]
     Active Substance: ROPINIROLE
     Indication: Adverse drug reaction
     Dosage: AT NIGHT
     Route: 065
     Dates: start: 2017
  2. ZOMIG [Concomitant]
     Active Substance: ZOLMITRIPTAN
     Indication: Migraine
     Dates: start: 2017

REACTIONS (1)
  - Restless leg augmentation syndrome [Not Recovered/Not Resolved]

NARRATIVE: CASE EVENT DATE: 20240101
